FAERS Safety Report 10453226 (Version 1)
Quarter: 2014Q3

REPORT INFORMATION
  Report Type: Report from Study
  Country: MW (occurrence: MW)
  Receive Date: 20140915
  Receipt Date: 20140915
  Transmission Date: 20150326
  Serious: Yes (Death, Other)
  Sender: FDA-Public Use
  Company Number: MW-BRISTOL-MYERS SQUIBB COMPANY-21366125

PATIENT
  Age: 49 Year
  Sex: Male

DRUGS (7)
  1. AMOXIL [Suspect]
     Active Substance: AMOXICILLIN
     Dates: start: 20140811
  2. PANADOL [Suspect]
     Active Substance: ACETAMINOPHEN
     Dosage: LAST DOSE:15AUG14
     Dates: start: 20140811
  3. TENOFOVIR [Suspect]
     Active Substance: TENOFOVIR
     Dosage: LAST DOSE:23AUG14
     Dates: start: 20140714
  4. COTRIMOXAZOLE [Suspect]
     Active Substance: SULFAMETHOXAZOLE\TRIMETHOPRIM
     Dates: start: 20140619, end: 20140823
  5. EMTRICITABINE [Suspect]
     Active Substance: EMTRICITABINE
     Dosage: LAST DOSE:23AUG14
     Dates: start: 20140714
  6. EFAVIRENZ [Suspect]
     Active Substance: EFAVIRENZ
     Indication: HIV INFECTION
     Dosage: LAST DOSE:23AUG14
     Route: 048
     Dates: start: 20140714
  7. RALTEGRAVIR [Suspect]
     Active Substance: RALTEGRAVIR
     Indication: HIV INFECTION
     Dosage: LAST DOSE:23AUG14
     Route: 048
     Dates: start: 20140714

REACTIONS (8)
  - Lower respiratory tract infection [Fatal]
  - Pyrexia [None]
  - Cough [None]
  - Pneumonia [None]
  - Chills [None]
  - Immune reconstitution inflammatory syndrome [Unknown]
  - Asthenia [None]
  - Dyspnoea [None]

NARRATIVE: CASE EVENT DATE: 20140823
